FAERS Safety Report 19611430 (Version 1)
Quarter: 2021Q3

REPORT INFORMATION
  Report Type: Spontaneous
  Country: JP (occurrence: JP)
  Receive Date: 20210726
  Receipt Date: 20210726
  Transmission Date: 20211014
  Serious: Yes (Hospitalization)
  Sender: FDA-Public Use
  Company Number: JP-TAKEDA-2021TUS044637

PATIENT
  Age: 31 Year
  Sex: Male

DRUGS (3)
  1. ELAPRASE [Suspect]
     Active Substance: IDURSULFASE
     Indication: MUCOPOLYSACCHARIDOSIS II
     Dosage: 6 MILLIGRAM, 1/WEEK
     Route: 041
  2. AGALSIDASE ALFA [Suspect]
     Active Substance: AGALSIDASE ALFA
     Indication: MUCOPOLYSACCHARIDOSIS II
     Dosage: UNK
     Route: 041
  3. ELAPRASE [Suspect]
     Active Substance: IDURSULFASE
     Dosage: 6 MILLIGRAM, 1/WEEK
     Route: 041
     Dates: start: 20210428

REACTIONS (2)
  - Antibody test positive [Unknown]
  - Nasopharyngitis [Recovering/Resolving]

NARRATIVE: CASE EVENT DATE: 20210428
